FAERS Safety Report 6147987-7 (Version None)
Quarter: 2009Q2

REPORT INFORMATION
  Report Type: 
  Country: None (occurrence: None)
  Receive Date: 20090408
  Receipt Date: 20090330
  Transmission Date: 20091009
  Serious: Yes (Death)
  Sender: FDA-Public Use
  Company Number: FR-ROCHE-624920

PATIENT
  Age: 41 Year
  Sex: Female
  Weight: 72 kg

DRUGS (2)
  1. PEGASYS [Suspect]
     Route: 058
     Dates: start: 20080314, end: 20081204
  2. COPEGUS [Suspect]
     Route: 058
     Dates: start: 20080314, end: 20081204

REACTIONS (2)
  - DEATH [None]
  - SUDDEN DEATH [None]
